FAERS Safety Report 10013503 (Version 1)
Quarter: 2014Q1

REPORT INFORMATION
  Report Type: Spontaneous
  Country: FR (occurrence: FR)
  Receive Date: 20140314
  Receipt Date: 20140314
  Transmission Date: 20141002
  Serious: Yes (Hospitalization)
  Sender: FDA-Public Use
  Company Number: FR-ASTRAZENECA-2014SE17062

PATIENT
  Age: 16430 Day
  Sex: Male

DRUGS (14)
  1. INEXIUM [Suspect]
     Route: 042
     Dates: start: 20140122, end: 20140127
  2. SODIUM CHLORIDE [Suspect]
     Route: 042
     Dates: start: 20140118, end: 20140127
  3. PARACETAMOL [Suspect]
     Dosage: 1 G FOUR TIMES PER DAY IF REQUIRED
     Route: 042
     Dates: start: 20140118, end: 20140127
  4. FLAGYL [Suspect]
     Route: 042
     Dates: start: 20140118, end: 20140127
  5. DEBRIDAT [Suspect]
     Route: 042
     Dates: start: 20140123, end: 20140127
  6. PERINUTRIFLEX [Suspect]
     Route: 042
     Dates: start: 20140122, end: 20140126
  7. TOPALGIC [Suspect]
     Dosage: 50 MG FOUR TIMES PER DAY IF REQUIRED
     Route: 042
     Dates: start: 20140118, end: 20140127
  8. CEFTRIAXONE [Suspect]
     Route: 042
     Dates: start: 20140118
  9. SPASFON [Suspect]
     Route: 042
     Dates: start: 20140119, end: 20140127
  10. GLUCIDON [Concomitant]
     Route: 042
     Dates: start: 20140118, end: 20140121
  11. ZOPHREN [Concomitant]
     Route: 042
     Dates: start: 20140121, end: 20140124
  12. GENTAMICINE [Concomitant]
     Route: 042
     Dates: start: 20140118, end: 20140120
  13. LOVENOX [Concomitant]
     Route: 058
     Dates: start: 20140118
  14. LASILIX [Concomitant]
     Route: 042
     Dates: start: 20140121, end: 20140122

REACTIONS (6)
  - Lymphangitis [Not Recovered/Not Resolved]
  - Subclavian vein thrombosis [Not Recovered/Not Resolved]
  - Skin discolouration [Unknown]
  - Peripheral coldness [Unknown]
  - Hot flush [Unknown]
  - Infusion site inflammation [Unknown]
